FAERS Safety Report 16769154 (Version 1)
Quarter: 2019Q3

REPORT INFORMATION
  Report Type: Spontaneous
  Country: GB (occurrence: GB)
  Receive Date: 20190903
  Receipt Date: 20190903
  Transmission Date: 20191005
  Serious: Yes (Life-Threatening, Hospitalization, Other)
  Sender: FDA-Public Use
  Company Number: GB-MYLANLABS-2019M1082486

PATIENT
  Age: 74 Year
  Sex: Female
  Weight: 69.4 kg

DRUGS (3)
  1. DENOSUMAB [Concomitant]
     Active Substance: DENOSUMAB
     Dosage: 60 MILLIGRAM PER MILLILITRE, PRN
     Dates: start: 20190116
  2. AMLODIPINE [Concomitant]
     Active Substance: AMLODIPINE BESYLATE
     Dosage: 5 MILLIGRAM, QD
     Dates: start: 20190110
  3. ALENDRONATE [Suspect]
     Active Substance: ALENDRONATE SODIUM
     Indication: PRODUCT USED FOR UNKNOWN INDICATION
     Dosage: 70 MILLIGRAM
     Route: 048
     Dates: end: 20180304

REACTIONS (4)
  - Upper gastrointestinal haemorrhage [Recovered/Resolved]
  - Haematemesis [Unknown]
  - Hypotension [Unknown]
  - Melaena [Unknown]

NARRATIVE: CASE EVENT DATE: 20180304
